FAERS Safety Report 13036189 (Version 1)
Quarter: 2016Q4

REPORT INFORMATION
  Report Type: Spontaneous
  Country: US (occurrence: US)
  Receive Date: 20161216
  Receipt Date: 20161216
  Transmission Date: 20170207
  Serious: No
  Sender: FDA-Public Use
  Company Number: US-PERRIGO-16US017911

PATIENT
  Age: 79 Year
  Sex: Female
  Weight: 61.22 kg

DRUGS (3)
  1. BACITRACIN. [Suspect]
     Active Substance: BACITRACIN
     Indication: DRY EYE
     Dosage: THIN LAYER TO CONJUCTIVAL SAC, QHS
     Route: 047
     Dates: start: 20160629, end: 20160706
  2. VITAMINS NOS [Concomitant]
     Active Substance: VITAMINS
     Indication: SUPPLEMENTATION THERAPY
     Dosage: UNK
     Route: 065
  3. AVENOVA OPHTHALMIC OINTMENT [Suspect]
     Active Substance: HYPOCHLOROUS ACID
     Indication: DRY EYE
     Dosage: THIN LAYER TO CONJUCTIVAL SAC, QHS
     Route: 047
     Dates: start: 20160629, end: 20160706

REACTIONS (3)
  - Ocular hyperaemia [Not Recovered/Not Resolved]
  - Eye swelling [Not Recovered/Not Resolved]
  - Off label use [Recovered/Resolved]

NARRATIVE: CASE EVENT DATE: 201606
